FAERS Safety Report 5389131-X (Version None)
Quarter: 2007Q3

REPORT INFORMATION
  Report Type: 
  Country: None (occurrence: None)
  Receive Date: 20070713
  Receipt Date: 20070713
  Transmission Date: 20080115
  Serious: No
  Sender: FDA-Public Use
  Company Number: None

PATIENT
  Age: 39 Year
  Sex: Male
  Weight: 77.1115 kg

DRUGS (2)
  1. PROMETHAZINE [Suspect]
     Indication: NAUSEA
     Dosage: INTRA-ARTERIAL
     Route: 013
     Dates: start: 20070614, end: 20070614
  2. PROMETHAZINE [Suspect]
     Indication: VOMITING
     Dosage: INTRA-ARTERIAL
     Route: 013
     Dates: start: 20070614, end: 20070614

REACTIONS (9)
  - CYANOSIS [None]
  - DRY GANGRENE [None]
  - FINGER AMPUTATION [None]
  - INCORRECT ROUTE OF DRUG ADMINISTRATION [None]
  - INFUSION RELATED REACTION [None]
  - NEURALGIA [None]
  - NO THERAPEUTIC RESPONSE [None]
  - PAIN [None]
  - THROMBOSIS [None]
